FAERS Safety Report 7027976 (Version 4)
Quarter: 2014Q2

REPORT INFORMATION
  Report Type: Spontaneous
  Country: US (occurrence: US)
  Receive Date: 20090619
  Receipt Date: 20140606
  Transmission Date: 20141212
  Serious: No
  Sender: FDA-Public Use
  Company Number: US-ASTRAZENECA-2007UW07118

PATIENT
  Age: 73 Year
  Sex: Female
  Weight: 65.3 kg

DRUGS (10)
  1. ATACAND [Suspect]
     Indication: HYPERTENSION
     Route: 048
  2. ATACAND [Suspect]
     Indication: HYPERTENSION
     Route: 048
     Dates: start: 2007
  3. ATACAND [Suspect]
     Indication: HYPERTENSION
     Route: 048
     Dates: start: 2009
  4. CRESTOR [Suspect]
     Indication: BLOOD CHOLESTEROL INCREASED
     Route: 048
  5. CRESTOR [Suspect]
     Indication: BLOOD CHOLESTEROL INCREASED
     Route: 048
     Dates: end: 2013
  6. CRESTOR [Suspect]
     Indication: BLOOD CHOLESTEROL INCREASED
     Route: 048
     Dates: start: 2014
  7. NEXIUM [Suspect]
     Indication: GASTROOESOPHAGEAL REFLUX DISEASE
     Route: 048
  8. CO-Q-10 [Suspect]
  9. VIT C [Concomitant]
  10. VIT D3 [Concomitant]
     Indication: VITAMIN D DEFICIENCY

REACTIONS (17)
  - Exostosis [Unknown]
  - Limb discomfort [Recovered/Resolved]
  - Tremor [Unknown]
  - Throat irritation [Unknown]
  - Rhinorrhoea [Unknown]
  - Dry throat [Unknown]
  - Hyperhidrosis [Unknown]
  - Pain in extremity [Unknown]
  - Myalgia [Recovered/Resolved]
  - Cough [Unknown]
  - Back pain [Unknown]
  - Dizziness [Recovered/Resolved]
  - Malaise [Unknown]
  - Muscle disorder [Recovered/Resolved]
  - Joint swelling [Unknown]
  - Burning sensation [Unknown]
  - Face oedema [Unknown]
